FAERS Safety Report 19766215 (Version 1)
Quarter: 2021Q3

REPORT INFORMATION
  Report Type: Spontaneous
  Country: US (occurrence: US)
  Receive Date: 20210826
  Receipt Date: 20210826
  Transmission Date: 20211014
  Serious: Yes (Hospitalization)
  Sender: FDA-Public Use
  Company Number: None

PATIENT
  Age: 62 Year
  Sex: Male

DRUGS (1)
  1. STIVARGA [Suspect]
     Active Substance: REGORAFENIB
     Indication: COLON CANCER
     Dosage: FREQUENCY TAKE TABLETS BY MOUTH FOR 21 DAYS AND THEN OFF FOR 7 DAYS?
     Route: 048
     Dates: start: 20210505, end: 20210523

REACTIONS (4)
  - Confusional state [None]
  - Vomiting [None]
  - Feeling abnormal [None]
  - Therapy interrupted [None]

NARRATIVE: CASE EVENT DATE: 20210522
